FAERS Safety Report 9021166 (Version 1)
Quarter: 2013Q1

REPORT INFORMATION
  Report Type: Spontaneous
  Country: US (occurrence: US)
  Receive Date: 20130119
  Receipt Date: 20130119
  Transmission Date: 20140127
  Serious: No
  Sender: FDA-Public Use
  Company Number: US-ALLERGAN-1203516US

PATIENT
  Age: 61 Year
  Sex: Male
  Weight: 78.01 kg

DRUGS (7)
  1. BOTOX? [Suspect]
     Indication: MIGRAINE
     Dosage: UNK
     Route: 030
     Dates: start: 20120215
  2. LIPITOR [Concomitant]
  3. ELAVIL                             /00002202/ [Concomitant]
  4. ZANAFLEX [Concomitant]
  5. TOPAMAX [Concomitant]
  6. ASA [Concomitant]
  7. BUTTERBUR [Concomitant]

REACTIONS (1)
  - Skin tightness [Unknown]
